FAERS Safety Report 12202323 (Version 3)
Quarter: 2016Q2

REPORT INFORMATION
  Report Type: Spontaneous
  Country: PL (occurrence: PL)
  Receive Date: 20160322
  Receipt Date: 20160530
  Transmission Date: 20160815
  Serious: Yes (Other)
  Sender: FDA-Public Use
  Company Number: PL-009507513-1603POL008913

PATIENT
  Age: 53 Year
  Sex: Female

DRUGS (3)
  1. TRUSOPT [Suspect]
     Active Substance: DORZOLAMIDE HYDROCHLORIDE
     Indication: GLAUCOMA
     Dosage: 1 GTT, TID, OU
     Route: 047
     Dates: start: 201512, end: 201604
  2. GANFORT [Concomitant]
     Active Substance: BIMATOPROST\TIMOLOL
     Indication: GLAUCOMA
     Dosage: UNK
  3. ALPHAGAN P [Concomitant]
     Active Substance: BRIMONIDINE TARTRATE
     Dosage: UNK
     Dates: start: 2016

REACTIONS (10)
  - Paraesthesia [Recovering/Resolving]
  - Hypoaesthesia [Recovering/Resolving]
  - Dry skin [Recovering/Resolving]
  - Eye pruritus [Recovering/Resolving]
  - Pharyngitis [Recovering/Resolving]
  - Tinnitus [Recovering/Resolving]
  - Pruritus genital [Recovering/Resolving]
  - Eye irritation [Recovering/Resolving]
  - Cataract operation [Recovering/Resolving]
  - Eye pain [Recovering/Resolving]

NARRATIVE: CASE EVENT DATE: 201512
